FAERS Safety Report 10137183 (Version 1)
Quarter: 2014Q2

REPORT INFORMATION
  Report Type: Spontaneous
  Country: GB (occurrence: None)
  Receive Date: 20140425
  Receipt Date: 20140425
  Transmission Date: 20141212
  Serious: Yes (Hospitalization, Disabling)
  Sender: FDA-Public Use
  Company Number: AUR-APL-2014-04878

PATIENT
  Age: 68 Year
  Sex: Female

DRUGS (7)
  1. SERTRALINE [Suspect]
     Indication: DEPRESSION
     Route: 048
     Dates: start: 20140201, end: 20140326
  2. BENDROFLUMETHIAZOLE (BENDROFLUMETHIAZIDE) [Concomitant]
  3. CLARITHROMYCIN (CLARITHROMYCIN) [Concomitant]
  4. DOXAZOSIN (DOXAZOSIN) [Concomitant]
  5. METRONIDAZOLE (METRONIDAZOLE) [Concomitant]
  6. OMEPRAZOLE (OMEPRAZOLE) [Concomitant]
  7. TEMAZEPAM (TEMAZEPAM) [Concomitant]

REACTIONS (9)
  - Delirium [None]
  - Hyponatraemia [None]
  - Depressed mood [None]
  - Anxiety [None]
  - Blood osmolarity decreased [None]
  - Sleep disorder [None]
  - Feeling abnormal [None]
  - Convulsion [None]
  - Delirium [None]
